FAERS Safety Report 9342594 (Version 1)
Quarter: 2013Q2

REPORT INFORMATION
  Report Type: Spontaneous
  Country: TW (occurrence: TW)
  Receive Date: 20130611
  Receipt Date: 20130611
  Transmission Date: 20140414
  Serious: Yes (Other)
  Sender: FDA-Public Use
  Company Number: TW-TEVA-411010ISR

PATIENT
  Age: 70 Year
  Sex: Male

DRUGS (2)
  1. FLUOROURACIL [Suspect]
     Indication: RECTAL ADENOCARCINOMA
     Dosage: WEEKLY BOLUS
     Route: 065
     Dates: start: 201003, end: 201004
  2. FOLINIC ACID [Suspect]
     Indication: RECTAL ADENOCARCINOMA
     Dosage: 30 MG/M2
     Route: 065
     Dates: start: 201003, end: 201004

REACTIONS (1)
  - Pseudomembranous colitis [Recovering/Resolving]
